FAERS Safety Report 18701210 (Version 1)
Quarter: 2021Q1

REPORT INFORMATION
  Report Type: Spontaneous
  Country: US (occurrence: US)
  Receive Date: 20210105
  Receipt Date: 20210105
  Transmission Date: 20210419
  Serious: No
  Sender: FDA-Public Use
  Company Number: None

PATIENT
  Age: 79 Year
  Sex: Female
  Weight: 53.1 kg

DRUGS (4)
  1. LOSARTAN 25MG BY MOUTH TWICE DAILY [Concomitant]
     Dates: start: 20200924
  2. OSIMERTINIB 40 MG BY MOUTH ONCE DAILY [Concomitant]
     Dates: start: 20200924
  3. REMDESIVIR. [Suspect]
     Active Substance: REMDESIVIR
     Indication: COVID-19
     Route: 041
     Dates: start: 20201219, end: 20201223
  4. BAMLANIVIMAB. [Suspect]
     Active Substance: BAMLANIVIMAB
     Indication: COVID-19
     Dosage: ?          OTHER FREQUENCY:ONCE;?
     Route: 041
     Dates: start: 20201220, end: 20201220

REACTIONS (8)
  - Sensitivity to weather change [None]
  - Hypersensitivity [None]
  - Infusion related reaction [None]
  - Rash pruritic [None]
  - Rash macular [None]
  - Dermatitis [None]
  - Viral rash [None]
  - Drug interaction [None]

NARRATIVE: CASE EVENT DATE: 20201231
